FAERS Safety Report 4461869-8 (Version None)
Quarter: 2004Q3

REPORT INFORMATION
  Report Type: 
  Country: None (occurrence: None)
  Receive Date: 20040929
  Receipt Date: 20031106
  Transmission Date: 20050211
  Serious: No
  Sender: FDA-Public Use
  Company Number: US-GLAXOSMITHKLINE-A0433283A

PATIENT
  Age: 83 Year
  Sex: Female

DRUGS (3)
  1. SEREVENT [Suspect]
     Indication: ASTHMA
     Dosage: 1MCG TWICE PER DAY
     Route: 055
     Dates: start: 20031103, end: 20031103
  2. PROCARDIA [Concomitant]
  3. SYNTHROID [Concomitant]

REACTIONS (2)
  - HYPOAESTHESIA [None]
  - TREMOR [None]
